FAERS Safety Report 9165009 (Version 1)
Quarter: 2013Q1

REPORT INFORMATION
  Report Type: Spontaneous
  Country: US (occurrence: US)
  Receive Date: 20130315
  Receipt Date: 20130315
  Transmission Date: 20140127
  Serious: Yes (Other)
  Sender: FDA-Public Use
  Company Number: US-BAYER-2013-029586

PATIENT
  Age: 32 Year
  Sex: Female

DRUGS (2)
  1. GIANVI [Suspect]
     Dosage: UNK
     Dates: start: 20060801, end: 20110718
  2. YAZ [Suspect]
     Dosage: UNK
     Dates: start: 20060801, end: 20110718

REACTIONS (1)
  - Cerebrovascular accident [None]
